FAERS Safety Report 4402704-3 (Version None)
Quarter: 2004Q3

REPORT INFORMATION
  Report Type: 
  Country: None (occurrence: None)
  Receive Date: 20040720
  Receipt Date: 20040720
  Transmission Date: 20050211
  Serious: Yes (Other)
  Sender: FDA-Public Use
  Company Number: None

PATIENT
  Sex: Male

DRUGS (2)
  1. DESFEROXOMINE 2 GM VIAL [Suspect]
     Indication: THALASSAEMIA
     Dosage: 835 MG Q DAY SUB-Q
     Route: 058
     Dates: start: 20040603, end: 20040707
  2. DESFEROXOMINE 500 MG VIAL [Suspect]
     Indication: BLOOD IRON INCREASED

REACTIONS (2)
  - INJECTION SITE INDURATION [None]
  - INJECTION SITE PAIN [None]
